FAERS Safety Report 14840154 (Version 1)
Quarter: 2018Q2

REPORT INFORMATION
  Report Type: Report from Study
  Country: US (occurrence: US)
  Receive Date: 20180503
  Receipt Date: 20180503
  Transmission Date: 20180711
  Serious: Yes (Hospitalization)
  Sender: FDA-Public Use
  Company Number: US-ROCHE-2116990

PATIENT
  Age: 83 Year
  Sex: Male
  Weight: 87.4 kg

DRUGS (3)
  1. CARBOPLATIN. [Suspect]
     Active Substance: CARBOPLATIN
     Indication: NON-SMALL CELL LUNG CANCER
     Dosage: 05 DOSES
     Route: 065
     Dates: start: 20171017
  2. PIRFENIDONE. [Suspect]
     Active Substance: PIRFENIDONE
     Indication: NON-SMALL CELL LUNG CANCER
     Dosage: 05 CYCLES
     Route: 048
     Dates: start: 20171017, end: 20180206
  3. ALIMTA [Suspect]
     Active Substance: PEMETREXED DISODIUM
     Indication: NON-SMALL CELL LUNG CANCER
     Dosage: 500MG/METER SQUARE, 05 DOSES
     Route: 042
     Dates: start: 20171017, end: 20180326

REACTIONS (2)
  - Anaemia [Unknown]
  - Vomiting [Unknown]

NARRATIVE: CASE EVENT DATE: 20180417
